FAERS Safety Report 18277278 (Version 1)
Quarter: 2020Q3

REPORT INFORMATION
  Report Type: Spontaneous
  Country: US (occurrence: US)
  Receive Date: 20200916
  Receipt Date: 20200916
  Transmission Date: 20201103
  Serious: Yes (Other)
  Sender: FDA-Public Use
  Company Number: None

PATIENT
  Age: 61 Year
  Sex: Female
  Weight: 65.25 kg

DRUGS (6)
  1. TRAZODONE [Concomitant]
     Active Substance: TRAZODONE HYDROCHLORIDE
  2. LOW DOSE NALTREXONE [Concomitant]
     Active Substance: NALTREXONE
  3. NATURE?THROID [Suspect]
     Active Substance: THYROID, PORCINE
     Indication: HYPOTHYROIDISM
     Dosage: ?          OTHER STRENGTH:GRAINS;QUANTITY:1 TABLET(S);?
     Route: 048
     Dates: start: 20100531, end: 20200914
  4. CENTRUM SILVER MULTIVITAMIN [Concomitant]
  5. CALCIUM [Concomitant]
     Active Substance: CALCIUM
  6. VITAMIN?D [Concomitant]
     Active Substance: VITAMIN D NOS

REACTIONS (4)
  - Weight increased [None]
  - Sluggishness [None]
  - Suicidal ideation [None]
  - Cognitive disorder [None]

NARRATIVE: CASE EVENT DATE: 20200813
